FAERS Safety Report 5536237-8 (Version None)
Quarter: 2007Q4

REPORT INFORMATION
  Report Type: 
  Country: None (occurrence: None)
  Receive Date: 20071120
  Receipt Date: 20070924
  Transmission Date: 20080405
  Serious: No
  Sender: FDA-Public Use
  Company Number: WAES 0709USA03989

PATIENT
  Age: 47 Year
  Sex: Male

DRUGS (10)
  1. JANUVIA [Suspect]
     Indication: TYPE 2 DIABETES MELLITUS
     Dosage: DAILY/PO
     Route: 048
     Dates: start: 20070831, end: 20070904
  2. JANUVIA [Suspect]
     Indication: TYPE 2 DIABETES MELLITUS
     Dosage: DAILY/PO
     Route: 048
     Dates: start: 20070901
  3. BENICAR [Concomitant]
  4. FLOMAX [Concomitant]
  5. NASONEX [Concomitant]
  6. PROVENTIL [Concomitant]
  7. SINGULAIR [Concomitant]
  8. VICODIN HP [Concomitant]
  9. XANAX [Concomitant]
  10. ALBUTEROL [Concomitant]

REACTIONS (6)
  - CHEST DISCOMFORT [None]
  - COUGH [None]
  - DRUG ADMINISTRATION ERROR [None]
  - HEADACHE [None]
  - NASOPHARYNGITIS [None]
  - WRONG TECHNIQUE IN DRUG USAGE PROCESS [None]
